FAERS Safety Report 9858670 (Version 1)
Quarter: 2014Q1

REPORT INFORMATION
  Report Type: Other
  Country: JP (occurrence: JP)
  Receive Date: 20140131
  Receipt Date: 20140131
  Transmission Date: 20141002
  Serious: Yes (Hospitalization)
  Sender: FDA-Public Use
  Company Number: JP-NAPPMUNDI-GBR-2014-0016917

PATIENT
  Age: 58 Year
  Sex: Male

DRUGS (2)
  1. OXYCODONE HCL PR TABLET [Suspect]
     Indication: PRODUCT USED FOR UNKNOWN INDICATION
     Dosage: UNK
     Route: 065
     Dates: end: 20130522
  2. OXYCODONE HCL PR TABLET [Suspect]
     Dosage: UNK
     Route: 065
     Dates: start: 201304

REACTIONS (1)
  - Delirium [Recovering/Resolving]
